FAERS Safety Report 7915849-8 (Version None)
Quarter: 2011Q4

REPORT INFORMATION
  Report Type: 
  Country: None (occurrence: None)
  Receive Date: 20111115
  Receipt Date: 20111031
  Transmission Date: 20120403
  Serious: Yes (Other)
  Sender: FDA-Public Use
  Company Number: CH-WATSON-2011-18560

PATIENT
  Age: 36 Year
  Sex: Female

DRUGS (1)
  1. BUPROPION HCL [Suspect]
     Indication: MAJOR DEPRESSION
     Dosage: 150 MG, DAILY
     Route: 065

REACTIONS (7)
  - TACHYCARDIA [None]
  - HYPERACUSIS [None]
  - HALLUCINATION, OLFACTORY [None]
  - HYPORESPONSIVE TO STIMULI [None]
  - HEADACHE [None]
  - HALLUCINATION, GUSTATORY [None]
  - ANXIETY [None]
